FAERS Safety Report 21326219 (Version 2)
Quarter: 2022Q3

REPORT INFORMATION
  Report Type: Spontaneous
  Country: ES (occurrence: ES)
  Receive Date: 20220913
  Receipt Date: 20220930
  Transmission Date: 20221027
  Serious: Yes (Hospitalization, Other)
  Sender: FDA-Public Use
  Company Number: ES-NOVARTISPH-NVSC2022ES204796

PATIENT
  Age: 80 Year
  Sex: Male

DRUGS (5)
  1. ELTROMBOPAG OLAMINE [Suspect]
     Active Substance: ELTROMBOPAG OLAMINE
     Indication: Immune thrombocytopenia
     Dosage: 50 MG, QD
     Route: 065
     Dates: start: 20220501
  2. ELTROMBOPAG OLAMINE [Suspect]
     Active Substance: ELTROMBOPAG OLAMINE
     Dosage: 75 MG, QD
     Route: 065
     Dates: start: 20220616, end: 20220627
  3. ELTROMBOPAG OLAMINE [Suspect]
     Active Substance: ELTROMBOPAG OLAMINE
     Dosage: UNK (25 MG  ALTERNATING  50 MG)
     Route: 065
  4. ELTROMBOPAG OLAMINE [Suspect]
     Active Substance: ELTROMBOPAG OLAMINE
     Dosage: UNK (75 MG ON MONDAY AND THURSDAY AND 50 MG PER DAY THE REST OF THE DAYS OF WEEK)
     Route: 065
     Dates: start: 20220627, end: 20220704
  5. PREDNISONE [Concomitant]
     Active Substance: PREDNISONE
     Indication: Atrial fibrillation
     Dosage: 1 MG/KG (FOR TWO DAYS)
     Route: 065
     Dates: start: 20220419, end: 20220525

REACTIONS (4)
  - Macular oedema [Recovering/Resolving]
  - Mouth haemorrhage [Unknown]
  - Thrombocytopenia [Unknown]
  - Thrombocytosis [Unknown]

NARRATIVE: CASE EVENT DATE: 20220525
